APPROVED DRUG PRODUCT: ZINACEF IN PLASTIC CONTAINER
Active Ingredient: CEFUROXIME SODIUM
Strength: EQ 15MG BASE/ML
Dosage Form/Route: INJECTABLE;INJECTION
Application: N050643 | Product #001
Applicant: PAI HOLDINGS LLC DBA PHARMACEUTICAL ASSOCIATES INC
Approved: Apr 28, 1989 | RLD: No | RS: No | Type: DISCN